FAERS Safety Report 7233245-6 (Version None)
Quarter: 2011Q1

REPORT INFORMATION
  Report Type: 
  Country: None (occurrence: None)
  Receive Date: 20110119
  Receipt Date: 20110118
  Transmission Date: 20110831
  Serious: Yes (Hospitalization)
  Sender: FDA-Public Use
  Company Number: B0687524A

PATIENT
  Age: 46 Year
  Sex: Male

DRUGS (2)
  1. ZIDOVUDINE [Suspect]
     Indication: HIV INFECTION
     Dates: start: 20050101
  2. NEVIRAPINE [Suspect]
     Indication: HIV INFECTION
     Dates: start: 20050101

REACTIONS (9)
  - DIABETIC HYPEROSMOLAR COMA [None]
  - CIRCULATORY COLLAPSE [None]
  - LACTIC ACIDOSIS [None]
  - MUSCULAR WEAKNESS [None]
  - URINARY INCONTINENCE [None]
  - DIZZINESS [None]
  - HAEMODYNAMIC INSTABILITY [None]
  - RENAL FAILURE ACUTE [None]
  - PYREXIA [None]
